FAERS Safety Report 9482169 (Version 1)
Quarter: 2013Q3

REPORT INFORMATION
  Report Type: Spontaneous
  Country: US (occurrence: US)
  Receive Date: 20130828
  Receipt Date: 20130828
  Transmission Date: 20140515
  Serious: No
  Sender: FDA-Public Use
  Company Number: US-009507513-1308USA009238

PATIENT
  Sex: Female

DRUGS (2)
  1. AZASITE [Suspect]
     Dosage: ONE DROP TWICE A DAY FOR TWO DAYS
     Route: 047
     Dates: start: 20130815, end: 20130816
  2. AZASITE [Suspect]
     Dosage: ONE DROP A DAY FOR ONE MONTH
     Route: 047
     Dates: start: 20130817

REACTIONS (3)
  - Product packaging quantity issue [Unknown]
  - Drug prescribing error [Unknown]
  - No adverse event [Unknown]
